FAERS Safety Report 4417963-0 (Version None)
Quarter: 2004Q2

REPORT INFORMATION
  Report Type: 
  Country: None (occurrence: None)
  Receive Date: 20040622
  Receipt Date: 20031110
  Transmission Date: 20050107
  Serious: Yes (Other)
  Sender: FDA-Public Use
  Company Number: 351313

PATIENT
  Age: 52 Year
  Sex: Female
  Weight: 87.8 kg

DRUGS (4)
  1. XELODA [Suspect]
     Indication: BREAST CANCER
     Dosage: 1000 MG 2 PER DAY ORAL
     Route: 048
     Dates: start: 20030310, end: 20030925
  2. HERCEPTIN [Concomitant]
  3. GLYCYCLAMIDE (GLYCYCLAMIDE) [Concomitant]
  4. PREDNISONE [Concomitant]

REACTIONS (2)
  - CONDITION AGGRAVATED [None]
  - NEUROPATHY PERIPHERAL [None]
